FAERS Safety Report 9360506 (Version 1)
Quarter: 2013Q2

REPORT INFORMATION
  Report Type: Spontaneous
  Country: US (occurrence: US)
  Receive Date: 20130621
  Receipt Date: 20130621
  Transmission Date: 20140414
  Serious: Yes (Death, Hospitalization, Other)
  Sender: FDA-Public Use
  Company Number: US-SUN PHARMACEUTICAL INDUSTRIES LTD-2013SUN00814

PATIENT
  Age: 51 Year
  Sex: Female

DRUGS (4)
  1. OXALIPLATIN [Suspect]
     Indication: SMALL INTESTINE CARCINOMA
     Route: 042
  2. LEUCOVORIN [Suspect]
     Indication: SMALL INTESTINE CARCINOMA
     Route: 065
  3. 5-FLUOROURACIL [Suspect]
     Indication: SMALL INTESTINE CARCINOMA
     Route: 065
  4. IRINOTECAN [Suspect]
     Indication: SMALL INTESTINE CARCINOMA
     Dosage: UNK
     Route: 042

REACTIONS (10)
  - Multi-organ failure [Fatal]
  - Respiratory failure [None]
  - Pulmonary oedema [Recovering/Resolving]
  - Pleural effusion [Recovering/Resolving]
  - Cardiac failure congestive [Unknown]
  - Leukoencephalopathy [Recovered/Resolved]
  - Pancreatic disorder [Unknown]
  - Pancytopenia [Recovered/Resolved]
  - Renal failure chronic [Recovered/Resolved]
  - Intracardiac thrombus [None]
